FAERS Safety Report 11926452 (Version 2)
Quarter: 2016Q1

REPORT INFORMATION
  Report Type: Report from Study
  Country: PK (occurrence: PK)
  Receive Date: 20160119
  Receipt Date: 20160308
  Transmission Date: 20160526
  Serious: Yes (Death, Hospitalization)
  Sender: FDA-Public Use
  Company Number: PHHY2016PK005484

PATIENT
  Age: 1 Year
  Sex: Male

DRUGS (3)
  1. GLIVEC [Suspect]
     Active Substance: IMATINIB MESYLATE
     Indication: BLAST CRISIS IN MYELOGENOUS LEUKAEMIA
     Dosage: 200 MG, UNK
     Route: 048
     Dates: start: 20151215
  2. DAUNORUBICIN [Concomitant]
     Active Substance: DAUNORUBICIN
     Indication: PRODUCT USED FOR UNKNOWN INDICATION
     Route: 065
  3. VINCRISTINE [Concomitant]
     Active Substance: VINCRISTINE
     Indication: PRODUCT USED FOR UNKNOWN INDICATION
     Route: 065

REACTIONS (4)
  - Haemoglobin decreased [Unknown]
  - Chronic myeloid leukaemia transformation [Unknown]
  - White blood cell count increased [Unknown]
  - Disease progression [Fatal]

NARRATIVE: CASE EVENT DATE: 20160110
